FAERS Safety Report 13401331 (Version 2)
Quarter: 2017Q3

REPORT INFORMATION
  Report Type: Spontaneous
  Country: US (occurrence: US)
  Receive Date: 20170404
  Receipt Date: 20170710
  Transmission Date: 20171127
  Serious: No
  Sender: FDA-Public Use
  Company Number: US-ALLERGAN-1707944US

PATIENT
  Age: 50 Year
  Sex: Male

DRUGS (2)
  1. VRAYLAR [Suspect]
     Active Substance: CARIPRAZINE
     Indication: ALCOHOL ABUSE
  2. VRAYLAR [Suspect]
     Active Substance: CARIPRAZINE
     Indication: DRUG ABUSE
     Dosage: UNK
     Route: 048
     Dates: start: 201702, end: 20170228

REACTIONS (1)
  - Somnolence [Recovered/Resolved]
